FAERS Safety Report 12344701 (Version 3)
Quarter: 2016Q3

REPORT INFORMATION
  Report Type: Spontaneous
  Country: US (occurrence: US)
  Receive Date: 20160507
  Receipt Date: 20160912
  Transmission Date: 20161109
  Serious: Yes (Hospitalization)
  Sender: FDA-Public Use
  Company Number: US-JNJFOC-20160416253

PATIENT
  Age: 55 Year

DRUGS (3)
  1. XARELTO [Suspect]
     Active Substance: RIVAROXABAN
     Indication: ATRIAL FIBRILLATION
     Dosage: VARIED DOSES OF 1-MG TO 15MG
     Route: 048
     Dates: start: 20150801, end: 20151128
  2. XARELTO [Suspect]
     Active Substance: RIVAROXABAN
     Indication: CEREBROVASCULAR ACCIDENT PROPHYLAXIS
     Dosage: VARIED DOSES OF 1-MG TO 15MG
     Route: 048
     Dates: start: 20150801, end: 20151128
  3. XARELTO [Suspect]
     Active Substance: RIVAROXABAN
     Indication: THROMBOSIS PROPHYLAXIS
     Dosage: VARIED DOSES OF 1-MG TO 15MG
     Route: 048
     Dates: start: 20150801, end: 20151128

REACTIONS (4)
  - Gastrointestinal haemorrhage [Unknown]
  - Urethral haemorrhage [Unknown]
  - Epistaxis [Unknown]
  - Eye haemorrhage [Unknown]

NARRATIVE: CASE EVENT DATE: 20151128
